FAERS Safety Report 22783161 (Version 8)
Quarter: 2025Q4

REPORT INFORMATION
  Report Type: Report from Study
  Country: US (occurrence: US)
  Receive Date: 20230803
  Receipt Date: 20251217
  Transmission Date: 20260118
  Serious: No
  Sender: PFIZER
  Company Number: US-PFIZER INC-PV202300007355

PATIENT
  Age: 81 Year
  Sex: Female

DRUGS (3)
  1. IBRANCE [Suspect]
     Active Substance: PALBOCICLIB
     Indication: Breast cancer metastatic
     Dosage: 125 MG
  2. IBRANCE [Suspect]
     Active Substance: PALBOCICLIB
     Dosage: 75 MG, CYCLIC, 1 TABLET DAILY FOR 21 DAYS ON THEN 14 DAYS OFF
  3. IBRANCE [Suspect]
     Active Substance: PALBOCICLIB
     Dosage: 75 MG, CYCLIC, TAKE 1 TABLET (75MG) BY MOUTH ONCE A DAY FOR 21 DAYS
     Route: 048

REACTIONS (2)
  - Blood test abnormal [Unknown]
  - Off label use [Unknown]
